FAERS Safety Report 20214079 (Version 1)
Quarter: 2021Q4

REPORT INFORMATION
  Report Type: Spontaneous
  Country: JP (occurrence: JP)
  Receive Date: 20211221
  Receipt Date: 20211221
  Transmission Date: 20220303
  Serious: Yes (Life-Threatening, Hospitalization, Other)
  Sender: FDA-Public Use
  Company Number: JP-MLMSERVICE-20210927-3132071-1

PATIENT
  Age: 22 Year
  Sex: Female

DRUGS (4)
  1. CYCLOSPORINE [Suspect]
     Active Substance: CYCLOSPORINE
     Indication: Still^s disease
     Dosage: UNKNOWN, UNKNOWN
     Route: 042
  2. HYDROCORTISONE [Suspect]
     Active Substance: HYDROCORTISONE
     Indication: Still^s disease
     Dosage: INTERMITTENT ADMINISTRATION
     Route: 042
  3. PREDNISONE [Suspect]
     Active Substance: PREDNISONE
     Indication: Still^s disease
     Dosage: UNKNOWN, UNKNOWN
     Route: 065
  4. PREDNISONE [Suspect]
     Active Substance: PREDNISONE
     Dosage: INCREASING THE DOSE
     Route: 065

REACTIONS (8)
  - Endocarditis [Recovered/Resolved]
  - Seizure [Recovered/Resolved]
  - Pulmonary nocardiosis [Recovered/Resolved]
  - Aneurysm ruptured [Recovered/Resolved]
  - Intracranial aneurysm [Recovered/Resolved]
  - Hemiplegia [Not Recovered/Not Resolved]
  - Nocardiosis [Recovered/Resolved]
  - Subarachnoid haemorrhage [Recovered/Resolved]
